FAERS Safety Report 10210572 (Version 1)
Quarter: 2014Q2

REPORT INFORMATION
  Report Type: Spontaneous
  Country: SE (occurrence: SE)
  Receive Date: 20140602
  Receipt Date: 20140602
  Transmission Date: 20141212
  Serious: Yes (Hospitalization, Disabling, Other)
  Sender: FDA-Public Use
  Company Number: SE-PFIZER INC-2014145689

PATIENT
  Age: 67 Year
  Sex: Male

DRUGS (6)
  1. LYRICA [Suspect]
     Indication: GENERALISED ANXIETY DISORDER
     Dosage: 50 MG, 2X/DAY
     Route: 048
     Dates: start: 20130201, end: 20140426
  2. PROPRANOLOL [Concomitant]
     Dosage: UNK
  3. SOBRIL [Concomitant]
     Dosage: UNK
  4. ZOPICLONE [Concomitant]
     Dosage: UNK
  5. CITALOPRAM [Concomitant]
     Dosage: UNK
  6. BRICANYL [Concomitant]
     Dosage: UNK

REACTIONS (3)
  - Renal failure acute [Not Recovered/Not Resolved]
  - Prostate cancer metastatic [Not Recovered/Not Resolved]
  - Metastases to liver [Not Recovered/Not Resolved]
